FAERS Safety Report 16756801 (Version 1)
Quarter: 2019Q3

REPORT INFORMATION
  Report Type: Spontaneous
  Country: US (occurrence: US)
  Receive Date: 20190829
  Receipt Date: 20190829
  Transmission Date: 20191005
  Serious: No
  Sender: FDA-Public Use
  Company Number: US-JNJFOC-20190834337

PATIENT
  Sex: Male

DRUGS (1)
  1. XARELTO [Suspect]
     Active Substance: RIVAROXABAN
     Indication: PRODUCT USED FOR UNKNOWN INDICATION
     Dosage: BEGAN XARELTO ON UNSPECIFIED DATE CLARIFIED AS TWO YEARS AGO
     Route: 048
     Dates: start: 2017

REACTIONS (2)
  - Inappropriate schedule of product administration [Recovered/Resolved]
  - Tooth extraction [Recovered/Resolved]
